FAERS Safety Report 6681159-2 (Version None)
Quarter: 2010Q2

REPORT INFORMATION
  Report Type: 
  Country: None (occurrence: None)
  Receive Date: 20100414
  Receipt Date: 20100408
  Transmission Date: 20101027
  Serious: Yes (Death, Life-Threatening, Hospitalization)
  Sender: FDA-Public Use
  Company Number: ES-CELGENEUS-144-21880-10032746

PATIENT
  Sex: Male

DRUGS (5)
  1. REVLIMID [Suspect]
     Route: 048
     Dates: start: 20100322, end: 20100326
  2. REVLIMID [Suspect]
     Route: 048
     Dates: start: 20090612
  3. DEXAMETHASONE [Suspect]
     Route: 048
     Dates: start: 20100322, end: 20100326
  4. DEXAMETHASONE [Suspect]
     Route: 048
     Dates: start: 20090612
  5. EPO [Concomitant]
     Indication: DRUG USE FOR UNKNOWN INDICATION
     Route: 065

REACTIONS (14)
  - BLOOD CALCIUM DECREASED [None]
  - BLOOD CREATINE PHOSPHOKINASE INCREASED [None]
  - BLOOD LACTATE DEHYDROGENASE INCREASED [None]
  - BLOOD SODIUM INCREASED [None]
  - COAGULOPATHY [None]
  - ESCHERICHIA INFECTION [None]
  - GAMMA-GLUTAMYLTRANSFERASE INCREASED [None]
  - HYPOTENSION [None]
  - METABOLIC ACIDOSIS [None]
  - MYOGLOBIN BLOOD INCREASED [None]
  - PROCTITIS [None]
  - SEPSIS [None]
  - SEPTIC SHOCK [None]
  - TROPONIN I INCREASED [None]
